FAERS Safety Report 8170637-5 (Version None)
Quarter: 2012Q1

REPORT INFORMATION
  Report Type: 
  Country: None (occurrence: None)
  Receive Date: 20120104
  Receipt Date: 20111007
  Transmission Date: 20120608
  Serious: No
  Sender: FDA-Public Use
  Company Number: 2011HGS-002624

PATIENT
  Age: 45 Year
  Sex: Female
  Weight: 83.9154 kg

DRUGS (9)
  1. LABETALOL HCL [Concomitant]
  2. TIZANIDINE HCL [Concomitant]
  3. SEROQUEL [Concomitant]
  4. CLARITIN [Concomitant]
  5. BENLYSTA [Suspect]
     Indication: SYSTEMIC LUPUS ERYTHEMATOSUS
     Dosage: 1 IN 2 WEEKS, THEN 1 IN 4 WEEKS, INTRAVENOUS DRIP
     Route: 041
     Dates: start: 20110527, end: 20110901
  6. PROZAC [Concomitant]
  7. HYDROCODONE BITARTRATE [Concomitant]
  8. IMURAN [Concomitant]
  9. XANAX [Concomitant]

REACTIONS (7)
  - SINUSITIS [None]
  - NASAL CONGESTION [None]
  - LOCALISED INFECTION [None]
  - MOOD ALTERED [None]
  - INFLUENZA LIKE ILLNESS [None]
  - DEPRESSION [None]
  - UPPER RESPIRATORY TRACT INFECTION [None]
